FAERS Safety Report 5584531-7 (Version None)
Quarter: 2008Q1

REPORT INFORMATION
  Report Type: 
  Country: None (occurrence: None)
  Receive Date: 20080103
  Receipt Date: 20071219
  Transmission Date: 20080703
  Serious: Yes (Hospitalization)
  Sender: FDA-Public Use
  Company Number: 2007S1013605

PATIENT
  Age: 58 Year
  Sex: Male
  Weight: 130 kg

DRUGS (13)
  1. CITALOPRAM HYDROBROMIDE [Suspect]
     Indication: DRUG USE FOR UNKNOWN INDICATION
     Dosage: 40 MG; DAILY; ORAL
     Route: 048
     Dates: start: 20060101, end: 20071205
  2. TRAMADOL HCL [Suspect]
     Dosage: 100 MG; ORAL
     Route: 048
     Dates: start: 20071119, end: 20071205
  3. BENDROFLUMETHIAZIDE [Concomitant]
  4. CANDESARTAN CILEXETIL [Concomitant]
  5. ETORICOXIB [Concomitant]
  6. FELODIPINE [Concomitant]
  7. FUROSEMIDE [Concomitant]
  8. MOXIFLOXACIN HCL [Concomitant]
  9. PARACETAMOL [Concomitant]
  10. FLOMAX [Concomitant]
  11. THIAMINE [Concomitant]
  12. VITAMIN B COMPLEX CAP [Concomitant]
  13. .... [Concomitant]

REACTIONS (1)
  - SEROTONIN SYNDROME [None]
